FAERS Safety Report 8825653 (Version 1)
Quarter: 2012Q4

REPORT INFORMATION
  Report Type: 
  Country: US (occurrence: US)
  Receive Date: 20121004
  Receipt Date: 20121004
  Transmission Date: 20130627
  Serious: No
  Sender: FDA-Public Use
  Company Number: US-BAYER-2012-095335

PATIENT
  Age: 58 Year
  Sex: Female
  Weight: 67.12 kg

DRUGS (2)
  1. CIPRO [Suspect]
     Indication: PNEUMONIA
     Dosage: UNK
     Dates: start: 201206, end: 201206
  2. GEODON [Concomitant]
     Indication: MOOD ALTERED
     Dosage: 160 mg (2 capsules of 80mg), HS
     Route: 048

REACTIONS (1)
  - No adverse event [None]
